FAERS Safety Report 11212517 (Version 1)
Quarter: 2015Q2

REPORT INFORMATION
  Report Type: Spontaneous
  Country: FR (occurrence: FR)
  Receive Date: 20150623
  Receipt Date: 20150623
  Transmission Date: 20150821
  Serious: Yes (Life-Threatening, Hospitalization, Other)
  Sender: FDA-Public Use
  Company Number: FR-ASTRAZENECA-2015SE59860

PATIENT
  Age: 24364 Day
  Sex: Female

DRUGS (14)
  1. BACTRIM [Concomitant]
     Active Substance: SULFAMETHOXAZOLE\TRIMETHOPRIM
  2. LERCAN [Concomitant]
     Active Substance: LERCANIDIPINE
  3. TEMERIT [Concomitant]
     Active Substance: NEBIVOLOL
  4. UVEDOSE [Concomitant]
     Active Substance: CHOLECALCIFEROL
  5. CELLCEPT [Concomitant]
     Active Substance: MYCOPHENOLATE MOFETIL\MYCOPHENOLATE MOFETIL HYDROCHLORIDE
  6. INEXIUM [Suspect]
     Active Substance: ESOMEPRAZOLE
     Route: 048
     Dates: end: 20150120
  7. PROGRAF [Concomitant]
     Active Substance: TACROLIMUS\TACROLIMUS ANHYDROUS
  8. UN-ALFA [Concomitant]
  9. CORTANCYL [Concomitant]
     Active Substance: PREDNISONE
  10. CALCIDIA [Concomitant]
     Active Substance: CALCIUM POLYCARBOPHIL
  11. LASILIX [Concomitant]
     Active Substance: FUROSEMIDE
  12. SPECIAFOLDINE [Concomitant]
     Active Substance: FOLIC ACID
  13. INEXIUM [Suspect]
     Active Substance: ESOMEPRAZOLE
     Route: 048
     Dates: start: 201502
  14. ROVALCYTE [Concomitant]
     Active Substance: VALGANCICLOVIR HYDROCHLORIDE
     Dosage: EVERY OTHER DAY

REACTIONS (6)
  - Hypomagnesaemia [Recovered/Resolved]
  - Blood phosphorus decreased [Recovered/Resolved]
  - Nausea [Unknown]
  - Generalised tonic-clonic seizure [Unknown]
  - Hypocalcaemia [Recovered/Resolved]
  - Tremor [Unknown]

NARRATIVE: CASE EVENT DATE: 20150109
